FAERS Safety Report 5174969-4 (Version None)
Quarter: 2006Q4

REPORT INFORMATION
  Report Type: 
  Country: None (occurrence: None)
  Receive Date: 20061214
  Receipt Date: 20060531
  Transmission Date: 20070319
  Serious: No
  Sender: FDA-Public Use
  Company Number: US-AMGEN-KDL181370

PATIENT
  Sex: Female

DRUGS (3)
  1. ENBREL [Suspect]
     Indication: ARTHRITIS
     Dates: start: 20040801
  2. METFORMIN [Concomitant]
  3. LOVASTATIN [Concomitant]

REACTIONS (2)
  - DIZZINESS [None]
  - PSORIASIS [None]
